FAERS Safety Report 5142577-7 (Version None)
Quarter: 2006Q4

REPORT INFORMATION
  Report Type: 
  Country: None (occurrence: None)
  Receive Date: 20061027
  Receipt Date: 20061011
  Transmission Date: 20070319
  Serious: Yes (Other)
  Sender: FDA-Public Use
  Company Number: TRP_0798_2006

PATIENT
  Age: 51 Year
  Sex: Male
  Weight: 68.0396 kg

DRUGS (4)
  1. RIBASPHERE [Suspect]
     Indication: HEPATITIS C
     Dosage: VAR BID PO
     Route: 048
     Dates: start: 20060525, end: 20060606
  2. PEGASYS [Suspect]
     Indication: HEPATITIS C
     Dosage: 180 MCG QWK SC
     Route: 058
     Dates: start: 20050501, end: 20060606
  3. COPEGUS [Concomitant]
  4. FAMVIR [Concomitant]

REACTIONS (7)
  - ABASIA [None]
  - DIZZINESS [None]
  - FALL [None]
  - FEELING HOT [None]
  - PHARMACEUTICAL PRODUCT COMPLAINT [None]
  - RASH [None]
  - VOMITING [None]
